FAERS Safety Report 7528991-0 (Version None)
Quarter: 2011Q2

REPORT INFORMATION
  Report Type: 
  Country: None (occurrence: None)
  Receive Date: 20110607
  Receipt Date: 20110602
  Transmission Date: 20111010
  Serious: Yes (Life-Threatening, Hospitalization, Other)
  Sender: FDA-Public Use
  Company Number: US-ASTRAZENECA-2011SE17393

PATIENT
  Age: 59 Year
  Sex: Female

DRUGS (1)
  1. NEXIUM [Suspect]
     Route: 048

REACTIONS (5)
  - PELVIC FRACTURE [None]
  - MECHANICAL VENTILATION [None]
  - OXYGEN SUPPLEMENTATION [None]
  - FALL [None]
  - ADVERSE EVENT [None]
